FAERS Safety Report 12341461 (Version 1)
Quarter: 2016Q2

REPORT INFORMATION
  Report Type: Spontaneous
  Country: US (occurrence: None)
  Receive Date: 20160505
  Receipt Date: 20160505
  Transmission Date: 20160815
  Serious: No
  Sender: FDA-Public Use
  Company Number: None

PATIENT
  Age: 44 Year
  Sex: Female

DRUGS (1)
  1. AFINITOR [Suspect]
     Active Substance: EVEROLIMUS
     Indication: NEOPLASM MALIGNANT
     Dosage: 10MG TAKE 1 TABLET DAILY PO
     Route: 048
     Dates: start: 20151221, end: 20160428

REACTIONS (3)
  - Eye swelling [None]
  - Conjunctivitis [None]
  - Rash [None]

NARRATIVE: CASE EVENT DATE: 20160428
